FAERS Safety Report 10357238 (Version 1)
Quarter: 2014Q3

REPORT INFORMATION
  Report Type: Report from Study
  Country: US (occurrence: US)
  Receive Date: 20140801
  Receipt Date: 20140801
  Transmission Date: 20150326
  Serious: Yes (Hospitalization)
  Sender: FDA-Public Use
  Company Number: PHHY2012US133118

PATIENT
  Sex: Male

DRUGS (13)
  1. CLONAZEPAM. [Suspect]
     Active Substance: CLONAZEPAM
     Dosage: 1 MG, AT BED TIME
     Route: 048
  2. ALBUTEROL SULFATE. [Concomitant]
     Active Substance: ALBUTEROL SULFATE
     Dosage: UNK MG/ML, (2.5/3)
  3. XOLAIR [Suspect]
     Active Substance: OMALIZUMAB
     Indication: ASTHMA
     Dosage: 300 MG, BIW
     Route: 058
  4. DEPLIN [Concomitant]
     Active Substance: LEVOMEFOLATE CALCIUM
     Dosage: 1 DF, DAILY
     Route: 048
  5. ADVAIR DISKUS [Concomitant]
     Active Substance: FLUTICASONE PROPIONATE\SALMETEROL XINAFOATE
     Dosage: UNK UG, UNK (500 TO 50 UG) (2 IN 1 D)
     Route: 055
     Dates: start: 20120720
  6. THEOPHYLLINE [Concomitant]
     Active Substance: THEOPHYLLINE
     Dosage: 2 DF, DAILY
     Route: 048
     Dates: start: 20120423
  7. PROAIR HFA [Concomitant]
     Active Substance: ALBUTEROL SULFATE
     Dosage: UNK UG, UNK (1 IN 4 HR)
     Dates: start: 20120206
  8. EPIPEN [Concomitant]
     Active Substance: EPINEPHRINE
     Dosage: UNK UKN, UNK
     Dates: start: 20121015
  9. AVODART [Concomitant]
     Active Substance: DUTASTERIDE
     Dosage: 1 DF, DAILY
     Route: 048
  10. EFFEXOR [Concomitant]
     Active Substance: VENLAFAXINE HYDROCHLORIDE
     Dosage: 1 DF, DAILY
     Route: 048
  11. CEREFOLIN [Concomitant]
     Active Substance: CYANOCOBALAMIN CO-57\LEVOMEFOLATE CALCIUM\PYRIDOXINE HYDROCHLORIDE\RIBOFLAVIN
     Dosage: 1 DF, DAILY
     Route: 048
  12. HYDROXYZINE HYDROCHLORIDE. [Concomitant]
     Active Substance: HYDROXYZINE HYDROCHLORIDE
     Dosage: 25 MG, UNK
     Route: 048
  13. TOPAMAX [Concomitant]
     Active Substance: TOPIRAMATE
     Dosage: 2 DF, DAILY
     Route: 048

REACTIONS (4)
  - Lobar pneumonia [Unknown]
  - Sepsis [Unknown]
  - Hypotension [Unknown]
  - Fatigue [Unknown]
